FAERS Safety Report 20701912 (Version 1)
Quarter: 2022Q2

REPORT INFORMATION
  Report Type: Other
  Country: US (occurrence: None)
  Receive Date: 20220412
  Receipt Date: 20220412
  Transmission Date: 20220720
  Serious: Yes (Other)
  Sender: FDA-Public Use
  Company Number: US-ROCHE-3065795

PATIENT

DRUGS (3)
  1. XELODA [Suspect]
     Active Substance: CAPECITABINE
     Indication: Breast cancer metastatic
     Dosage: TAKE 3 TABLET(S) BY MOUTH TWICE A DAY FOR 14 DAYS ON, THEN 7 DAYS OFF.
     Route: 048
  2. XELODA [Suspect]
     Active Substance: CAPECITABINE
     Indication: Osteoporosis
  3. VICODIN [Concomitant]
     Active Substance: ACETAMINOPHEN\HYDROCODONE BITARTRATE
     Route: 065

REACTIONS (1)
  - Brain neoplasm malignant [Unknown]
